FAERS Safety Report 20129639 (Version 1)
Quarter: 2021Q4

REPORT INFORMATION
  Report Type: Spontaneous
  Country: US (occurrence: None)
  Receive Date: 20211129
  Receipt Date: 20211129
  Transmission Date: 20220303
  Serious: Yes (Other)
  Sender: FDA-Public Use
  Company Number: None

PATIENT
  Age: 33 Year
  Sex: Female
  Weight: 106 kg

DRUGS (10)
  1. BAMLANIVIMAB\ETESEVIMAB [Suspect]
     Active Substance: BAMLANIVIMAB\ETESEVIMAB
     Indication: COVID-19
     Dates: start: 20211129, end: 20211129
  2. TRAMADOL [Concomitant]
     Active Substance: TRAMADOL
  3. SEMAGLUTIDE [Concomitant]
     Active Substance: SEMAGLUTIDE
  4. DEXTROAMPHET SACCHARAT, AMPHET ASPARTATE, DEXTROAMPHET SULFATE AND AMP [Concomitant]
     Active Substance: AMPHETAMINE ASPARTATE\AMPHETAMINE SULFATE\DEXTROAMPHETAMINE SACCHARATE\DEXTROAMPHETAMINE SULFATE
  5. SECUKINUMAB [Concomitant]
     Active Substance: SECUKINUMAB
  6. TIZANIDINE [Concomitant]
     Active Substance: TIZANIDINE
  7. LEVOTHYROXINE [Concomitant]
     Active Substance: LEVOTHYROXINE
  8. TEMAZEPAM [Concomitant]
     Active Substance: TEMAZEPAM
  9. MELOXICAM [Concomitant]
     Active Substance: MELOXICAM
  10. SPIRONOLACTONE [Concomitant]
     Active Substance: SPIRONOLACTONE

REACTIONS (4)
  - Pruritus [None]
  - Urticaria [None]
  - Paraesthesia oral [None]
  - Paraesthesia oral [None]

NARRATIVE: CASE EVENT DATE: 20211129
